FAERS Safety Report 7996837 (Version 2)
Quarter: 2012Q4

REPORT INFORMATION
  Report Type: 
  Country: CA (occurrence: CA)
  Receive Date: 20110617
  Receipt Date: 20121107
  Transmission Date: 20130627
  Serious: Yes (Other)
  Sender: FDA-Public Use
  Company Number: PHHY2008CA18458

PATIENT
  Sex: Male

DRUGS (2)
  1. SANDOSTATIN [Suspect]
     Indication: NEUROENDOCRINE CARCINOMA
     Dosage: 20 mg once in a month.
     Route: 030
     Dates: start: 20071126
  2. NOVOTRIMEL [Concomitant]
     Dosage: 1 DF, BID
     Route: 048

REACTIONS (4)
  - Syncope [Unknown]
  - Pyrexia [Unknown]
  - Wound secretion [Unknown]
  - Flatulence [Not Recovered/Not Resolved]
